FAERS Safety Report 17530319 (Version 10)
Quarter: 2020Q4

REPORT INFORMATION
  Report Type: Report from Study
  Country: JP (occurrence: JP)
  Receive Date: 20200311
  Receipt Date: 20201028
  Transmission Date: 20210113
  Serious: Yes (Death, Life-Threatening)
  Sender: FDA-Public Use
  Company Number: JP-PFIZER INC-2020096661

PATIENT
  Age: 77 Year
  Sex: Male

DRUGS (14)
  1. URSO [Concomitant]
     Active Substance: URSODIOL
     Route: 048
  2. ALLOPURINOL. [Concomitant]
     Active Substance: ALLOPURINOL
     Dosage: UNK
     Route: 048
     Dates: start: 20170501
  3. XELJANZ [Suspect]
     Active Substance: TOFACITINIB CITRATE
     Indication: RHEUMATOID ARTHRITIS
     Dosage: 5 MG, 1X/DAY
     Route: 048
     Dates: start: 20170105, end: 20170208
  4. AZULFIDINE [Concomitant]
     Active Substance: SULFASALAZINE
     Dosage: UNK
     Dates: start: 201512
  5. CLENAFIN [Concomitant]
     Active Substance: EFINACONAZOLE
  6. PREDNISOLONE. [Concomitant]
     Active Substance: PREDNISOLONE
     Dosage: 4.5 MG, DAILY
     Route: 048
     Dates: start: 20190219, end: 20190520
  7. XELJANZ [Suspect]
     Active Substance: TOFACITINIB CITRATE
     Dosage: 5 MG, 1X/DAY
     Route: 048
     Dates: start: 20170313, end: 20170409
  8. PREDNISOLONE. [Concomitant]
     Active Substance: PREDNISOLONE
     Dosage: 5 MG, DAILY
     Route: 048
     Dates: start: 20180730, end: 20190218
  9. PREDNISOLONE. [Concomitant]
     Active Substance: PREDNISOLONE
     Dosage: 4 MG, DAILY
     Route: 048
     Dates: start: 20190521
  10. LULICON [Concomitant]
     Active Substance: LULICONAZOLE
  11. XELJANZ [Suspect]
     Active Substance: TOFACITINIB CITRATE
     Dosage: 5 MG, 2X/DAY
     Route: 048
     Dates: start: 20170410, end: 20171105
  12. XELJANZ [Suspect]
     Active Substance: TOFACITINIB CITRATE
     Dosage: 5 MG, 1X/DAY
     Route: 048
     Dates: start: 20171106, end: 20180604
  13. AZULFIDINE [Concomitant]
     Active Substance: SULFASALAZINE
     Dosage: UNK
     Dates: start: 20131003, end: 201506
  14. CALBLOCK [Concomitant]
     Active Substance: AZELNIDIPINE
     Route: 048

REACTIONS (1)
  - Plasma cell myeloma [Not Recovered/Not Resolved]

NARRATIVE: CASE EVENT DATE: 201809
